FAERS Safety Report 8582370 (Version 3)
Quarter: 2013Q2

REPORT INFORMATION
  Report Type: Report from Study
  Country: US (occurrence: US)
  Receive Date: 20120529
  Receipt Date: 20130410
  Transmission Date: 20140414
  Serious: Yes (Hospitalization)
  Sender: FDA-Public Use
  Company Number: US-BRISTOL-MYERS SQUIBB COMPANY-16606717

PATIENT
  Age: 80 Year
  Sex: Male

DRUGS (8)
  1. BLINDED: SAXAGLIPTIN [Suspect]
     Indication: TYPE 2 DIABETES MELLITUS
     Dates: start: 20100611, end: 20111219
  2. HUMALOG [Suspect]
     Indication: TYPE 2 DIABETES MELLITUS
  3. LANTUS [Suspect]
     Indication: TYPE 2 DIABETES MELLITUS
  4. BLINDED: PLACEBO [Suspect]
     Indication: TYPE 2 DIABETES MELLITUS
  5. METOPROLOL TARTRATE [Suspect]
  6. FUROSEMIDE [Suspect]
  7. ASPIRIN [Concomitant]
  8. TERAZOSIN [Concomitant]
     Dates: start: 20110912

REACTIONS (1)
  - Orthostatic hypotension [Recovering/Resolving]
